FAERS Safety Report 21025684 (Version 1)
Quarter: 2022Q2

REPORT INFORMATION
  Report Type: Report from Study
  Country: CA (occurrence: CA)
  Receive Date: 20220630
  Receipt Date: 20220630
  Transmission Date: 20220721
  Serious: Yes (Hospitalization, Other)
  Sender: FDA-Public Use
  Company Number: CA-ABBVIE-22K-028-4450957-00

PATIENT
  Age: 71 Year
  Sex: Female

DRUGS (2)
  1. RINVOQ [Suspect]
     Active Substance: UPADACITINIB
     Indication: Rheumatoid arthritis
     Route: 048
     Dates: start: 20210122, end: 20220609
  2. RINVOQ [Suspect]
     Active Substance: UPADACITINIB
     Route: 048
     Dates: start: 20220622

REACTIONS (9)
  - Cerebrovascular accident [Unknown]
  - Cellulitis [Unknown]
  - Musculoskeletal disorder [Unknown]
  - Nerve compression [Unknown]
  - Sciatica [Unknown]
  - Urinary tract infection [Unknown]
  - Memory impairment [Unknown]
  - Oral candidiasis [Unknown]
  - Pneumonia [Unknown]

NARRATIVE: CASE EVENT DATE: 20220401
